FAERS Safety Report 10528013 (Version 1)
Quarter: 2014Q4

REPORT INFORMATION
  Report Type: Spontaneous
  Country: US (occurrence: US)
  Receive Date: 20141020
  Receipt Date: 20141020
  Transmission Date: 20150528
  Serious: Yes (Other)
  Sender: FDA-Public Use
  Company Number: US-ELI_LILLY_AND_COMPANY-US201410005275

PATIENT
  Age: 70 Year
  Sex: Male

DRUGS (7)
  1. PROZAC [Suspect]
     Active Substance: FLUOXETINE HYDROCHLORIDE
     Indication: MAJOR DEPRESSION
     Dosage: 20 MG, QD
     Route: 065
  2. PAROXETINE [Suspect]
     Active Substance: PAROXETINE\PAROXETINE HYDROCHLORIDE
     Indication: DYSPHORIA
     Dosage: 10 MG, QD
     Route: 065
  3. BENZTROPINE [Suspect]
     Active Substance: BENZTROPINE
     Indication: GAIT DISTURBANCE
  4. PERPHENAZINE. [Suspect]
     Active Substance: PERPHENAZINE
     Indication: MAJOR DEPRESSION
     Dosage: UNK UNK, QD
     Route: 065
  5. BENZTROPINE [Suspect]
     Active Substance: BENZTROPINE
     Indication: TREMOR
     Dosage: 0.5 MG, TID
     Route: 065
  6. PERPHENAZINE. [Suspect]
     Active Substance: PERPHENAZINE
     Dosage: 24 MG, QD
     Route: 065
  7. PAROXETINE [Suspect]
     Active Substance: PAROXETINE\PAROXETINE HYDROCHLORIDE
     Dosage: 20 MG, QD
     Route: 065

REACTIONS (3)
  - Tremor [Unknown]
  - Gait disturbance [Unknown]
  - Delirium [Recovered/Resolved]
